FAERS Safety Report 7669843-5 (Version None)
Quarter: 2011Q3

REPORT INFORMATION
  Report Type: 
  Country: None (occurrence: None)
  Receive Date: 20110808
  Receipt Date: 20110803
  Transmission Date: 20111222
  Serious: Yes (Other)
  Sender: FDA-Public Use
  Company Number: JP-PFIZER INC-2011176660

PATIENT
  Age: 45 Year
  Sex: Male

DRUGS (1)
  1. SULBACTAM SODIUM AND CEFOPERAZONE SODIUM [Suspect]
     Indication: BILIARY TRACT INFECTION
     Dosage: UNK
     Dates: start: 20100910

REACTIONS (1)
  - LIVER DISORDER [None]
